FAERS Safety Report 15460495 (Version 1)
Quarter: 2018Q4

REPORT INFORMATION
  Report Type: Report from Study
  Country: SI (occurrence: SI)
  Receive Date: 20181003
  Receipt Date: 20181003
  Transmission Date: 20190204
  Serious: Yes (Death)
  Sender: FDA-Public Use
  Company Number: SI-JNJFOC-20181000582

PATIENT
  Age: 93 Year
  Sex: Male

DRUGS (1)
  1. XARELTO [Suspect]
     Active Substance: RIVAROXABAN
     Indication: ATRIAL FIBRILLATION
     Route: 048

REACTIONS (1)
  - Aortic aneurysm rupture [Fatal]
